FAERS Safety Report 16052344 (Version 2)
Quarter: 2019Q1

REPORT INFORMATION
  Report Type: Spontaneous
  Country: LT (occurrence: LT)
  Receive Date: 20190308
  Receipt Date: 20190319
  Transmission Date: 20190418
  Serious: Yes (Other)
  Sender: FDA-Public Use
  Company Number: LT-009507513-1903LTU002828

PATIENT
  Age: 54 Year
  Sex: Female
  Weight: 66 kg

DRUGS (2)
  1. KEYTRUDA [Suspect]
     Active Substance: PEMBROLIZUMAB
     Dosage: UNK
     Dates: start: 20190308
  2. KEYTRUDA [Suspect]
     Active Substance: PEMBROLIZUMAB
     Dosage: 200 MILLIGRAM, Q3, ONE INFUSION
     Dates: start: 20190205, end: 20190223

REACTIONS (4)
  - Pyrexia [Unknown]
  - Condition aggravated [Unknown]
  - Jaundice [Recovered/Resolved]
  - Asthenia [Unknown]
